FAERS Safety Report 20292517 (Version 1)
Quarter: 2022Q1

REPORT INFORMATION
  Report Type: Spontaneous
  Country: US (occurrence: None)
  Receive Date: 20220104
  Receipt Date: 20220104
  Transmission Date: 20220423
  Serious: Yes (Hospitalization)
  Sender: FDA-Public Use
  Company Number: None

PATIENT
  Sex: Male

DRUGS (11)
  1. NORDITROPIN [Suspect]
     Active Substance: SOMATROPIN
     Indication: Hypopituitarism
     Route: 058
     Dates: start: 20211001
  2. AZITHROMYCIN SUS [Concomitant]
  3. CLONIDINE TAB [Concomitant]
  4. CYPROHEPTAD SYP [Concomitant]
  5. L-ALANINE POW [Concomitant]
  6. LASIX TAB [Concomitant]
  7. NORDITROPIN INJ [Concomitant]
  8. NORDITROPIN FLEXPRO [Concomitant]
  9. QVAR AER [Concomitant]
  10. RANITIDINE HCL [Concomitant]
  11. SYNTHROID TAB [Concomitant]

REACTIONS (1)
  - Hospitalisation [None]
